FAERS Safety Report 7900436 (Version 4)
Quarter: 2013Q1

REPORT INFORMATION
  Report Type: Spontaneous
  Country: JP (occurrence: JP)
  Receive Date: 20110415
  Receipt Date: 20130204
  Transmission Date: 20140127
  Serious: Yes (Other)
  Sender: FDA-Public Use
  Company Number: JP-BAYER-2011-030743

PATIENT
  Age: 72 Year
  Sex: Male
  Weight: 62 kg

DRUGS (7)
  1. NEXAVAR [Suspect]
     Indication: HEPATOCELLULAR CARCINOMA
     Dosage: 400 MG, BID
     Route: 048
     Dates: start: 20110330, end: 20110404
  2. NEXAVAR [Suspect]
     Indication: HEPATOCELLULAR CARCINOMA
     Dosage: 400 MG, BID
     Route: 048
     Dates: end: 20110518
  3. MEXITIL [Concomitant]
     Dosage: DAILY DOSE 150 MG
     Route: 048
     Dates: start: 2008
  4. QUINIDINE SULFATE [Concomitant]
     Dosage: DAILY DOSE 300 MG
     Route: 048
     Dates: start: 2008
  5. NU-LOTAN [Concomitant]
     Dosage: DAILY DOSE 25 MG
     Route: 048
     Dates: start: 2008
  6. NORVASC [Concomitant]
     Dosage: DAILY DOSE 5 MG
     Route: 048
     Dates: start: 2008
  7. TENORMIN [Concomitant]
     Dosage: DAILY DOSE 6.25 MG
     Route: 048

REACTIONS (4)
  - Hepatic encephalopathy [Recovered/Resolved]
  - Palmar-plantar erythrodysaesthesia syndrome [Not Recovered/Not Resolved]
  - Rash [Not Recovered/Not Resolved]
  - Fatigue [Not Recovered/Not Resolved]
